FAERS Safety Report 26123737 (Version 3)
Quarter: 2025Q4

REPORT INFORMATION
  Report Type: Spontaneous
  Country: GB (occurrence: GB)
  Receive Date: 20251205
  Receipt Date: 20251231
  Transmission Date: 20260118
  Serious: Yes (Other)
  Sender: ALKEM
  Company Number: None

PATIENT
  Age: 52 Year
  Sex: Female

DRUGS (1)
  1. IBUPROFEN [Suspect]
     Active Substance: IBUPROFEN
     Indication: Spinal osteoarthritis
     Dosage: UNK, PRN
     Route: 065

REACTIONS (24)
  - Acute febrile neutrophilic dermatosis [Recovered/Resolved]
  - Papule [Recovered/Resolved]
  - Oropharyngeal pain [Recovered/Resolved]
  - Cough [Recovered/Resolved]
  - Skin plaque [Recovered/Resolved]
  - Oropharyngeal erythema [Recovered/Resolved]
  - Skin exfoliation [Recovered/Resolved]
  - Pain of skin [Recovered/Resolved]
  - Skin lesion [Recovered/Resolved]
  - Parakeratosis [Recovered/Resolved]
  - Erythema annulare [Recovered/Resolved]
  - Erythema [Recovered/Resolved]
  - Lymphocytic infiltration [Recovered/Resolved]
  - Skin hyperpigmentation [Recovered/Resolved]
  - Pallor [Recovered/Resolved]
  - Dry skin [Recovered/Resolved]
  - Acanthosis [Recovered/Resolved]
  - Hyperkeratosis [Recovered/Resolved]
  - Rash papular [Recovered/Resolved]
  - Decreased appetite [Recovered/Resolved]
  - Fatigue [Recovered/Resolved]
  - Pyrexia [Recovered/Resolved]
  - Eosinophilia [Recovered/Resolved]
  - Self-medication [Unknown]
